FAERS Safety Report 15450150 (Version 2)
Quarter: 2022Q2

REPORT INFORMATION
  Report Type: Spontaneous
  Country: US (occurrence: US)
  Receive Date: 20181001
  Receipt Date: 20220429
  Transmission Date: 20220721
  Serious: No
  Sender: FDA-Public Use
  Company Number: US-PFIZER INC-2018385411

PATIENT
  Age: 55 Year
  Sex: Female

DRUGS (3)
  1. SOMAVERT [Suspect]
     Active Substance: PEGVISOMANT
     Dosage: 10 MG, 5 TIMES A WEEK
     Dates: start: 20070307
  2. SOMAVERT [Suspect]
     Active Substance: PEGVISOMANT
     Dosage: 20 MG 5 DAYS A WEEK
     Dates: start: 2007
  3. SOMAVERT [Suspect]
     Active Substance: PEGVISOMANT
     Dosage: 20 MG, MONDAY-FRIDAY, ALSO REPORTED AS EVERY OTHER DAY

REACTIONS (3)
  - Fatigue [Unknown]
  - Muscular weakness [Unknown]
  - Off label use [Unknown]

NARRATIVE: CASE EVENT DATE: 20070307
